FAERS Safety Report 6222179-1 (Version None)
Quarter: 2009Q2

REPORT INFORMATION
  Report Type: 
  Country: None (occurrence: None)
  Receive Date: 20090611
  Receipt Date: 20090602
  Transmission Date: 20091009
  Serious: Yes (Congenital Anomaly)
  Sender: FDA-Public Use
  Company Number: US-ROCHE-636895

PATIENT

DRUGS (2)
  1. MYCOPHENOLATE MOFETIL [Suspect]
     Route: 064
  2. TACROLIMUS [Suspect]
     Route: 064

REACTIONS (2)
  - DUODENAL ATRESIA [None]
  - FALLOT'S TETRALOGY [None]
